FAERS Safety Report 10774809 (Version 1)
Quarter: 2015Q1

REPORT INFORMATION
  Report Type: Spontaneous
  Country: US (occurrence: US)
  Receive Date: 20150209
  Receipt Date: 20150209
  Transmission Date: 20150721
  Serious: Yes (Hospitalization)
  Sender: FDA-Public Use
  Company Number: US-GILEAD-2015-0135816

PATIENT
  Age: 54 Year
  Sex: Female

DRUGS (15)
  1. LETAIRIS [Suspect]
     Active Substance: AMBRISENTAN
     Indication: PULMONARY ARTERIAL HYPERTENSION
     Dosage: 10 MG, QD
     Route: 065
     Dates: start: 20120410
  2. TYLENOL [Concomitant]
     Active Substance: ACETAMINOPHEN
  3. REMODULIN [Concomitant]
     Active Substance: TREPROSTINIL
  4. COMPAZINE [Concomitant]
     Active Substance: PROCHLORPERAZINE MALEATE
  5. METOLAZONE. [Concomitant]
     Active Substance: METOLAZONE
  6. MIDODRINE [Concomitant]
     Active Substance: MIDODRINE
  7. PRILOSEC [Concomitant]
     Active Substance: OMEPRAZOLE MAGNESIUM
  8. FERROUS SULFATE [Concomitant]
     Active Substance: FERROUS SULFATE\FERROUS SULFATE, DRIED
  9. ADCIRCA [Concomitant]
     Active Substance: TADALAFIL
  10. LEVBID [Concomitant]
     Active Substance: HYOSCYAMINE SULFATE
  11. XANAX [Concomitant]
     Active Substance: ALPRAZOLAM
  12. PROAIR HFA [Concomitant]
     Active Substance: ALBUTEROL SULFATE
  13. ZOFRAN                             /00955301/ [Concomitant]
     Active Substance: ONDANSETRON HYDROCHLORIDE
  14. NYSTATIN. [Concomitant]
     Active Substance: NYSTATIN
  15. GABAPENTIN. [Concomitant]
     Active Substance: GABAPENTIN

REACTIONS (1)
  - Dyspnoea [Unknown]

NARRATIVE: CASE EVENT DATE: 20150203
